FAERS Safety Report 5493628-1 (Version None)
Quarter: 2007Q4

REPORT INFORMATION
  Report Type: 
  Country: None (occurrence: None)
  Receive Date: 20071023
  Receipt Date: 20071016
  Transmission Date: 20080405
  Serious: Yes (Life-Threatening, Hospitalization)
  Sender: FDA-Public Use
  Company Number: US-TYCO HEALTHCARE/MALLINCKRODT-T200701252

PATIENT

DRUGS (18)
  1. METHADONE HCL [Suspect]
     Indication: PAIN
     Dosage: 10 MG, 1-2 TABLET, Q6HR
     Route: 048
  2. METHADONE HCL [Suspect]
     Dosage: 40 MG, BID
     Route: 048
     Dates: start: 20070820
  3. CP-751,871 [Suspect]
     Indication: NON-SMALL CELL LUNG CANCER
     Dosage: 1560 MG, SINGLE (1 DOSE Q 21 DAYS)
     Route: 042
     Dates: start: 20070620, end: 20070620
  4. CP-751,871 [Suspect]
     Dosage: 1600 MG, SINGLE (1 DOSE Q 21 DAYS)
     Route: 042
     Dates: start: 20070711, end: 20070711
  5. CP-751,871 [Suspect]
     Dosage: 1540 MG, SINGLE (1 DOSE Q 21 DAYS)
     Route: 042
     Dates: start: 20070801
  6. TAXOL [Suspect]
     Indication: NON-SMALL CELL LUNG CANCER
     Dosage: 395 MG, SINGLE (1 DOSE Q 21 DAYS)
     Route: 042
     Dates: start: 20070619, end: 20070619
  7. TAXOL [Suspect]
     Dosage: 382 MG, SINGLE (1 DOSE Q 21 DAYS)
     Route: 042
     Dates: start: 20070710, end: 20070710
  8. TAXOL [Suspect]
     Dosage: 329 MG, SINGLE (1 DOSE Q 21 DAYS)
     Route: 042
     Dates: start: 20070731, end: 20070731
  9. CARBOPLATIN [Suspect]
     Indication: NON-SMALL CELL LUNG CANCER
     Dosage: 620 MG, SINGLE (1 DOSE Q 21 DAYS)
     Route: 042
     Dates: start: 20070619, end: 20070619
  10. CARBOPLATIN [Suspect]
     Dosage: 564 MG, SINGLE ( 1 DOSE Q 21 DAYS)
     Route: 042
     Dates: start: 20070710, end: 20070710
  11. CARBOPLATIN [Suspect]
     Dosage: 516 MG, SINGLE (1 DOSE Q 21 DAYS)
     Route: 042
     Dates: start: 20070731
  12. LEXAPRO [Suspect]
     Dosage: 10 MG, QD
     Route: 048
     Dates: start: 20070612
  13. COUMADIN [Suspect]
     Dosage: 5 MG, QD
     Route: 048
     Dates: start: 20070731
  14. LOVENOX [Suspect]
     Dosage: 10 MG, Q6-8HR
     Route: 048
     Dates: start: 20070612
  15. REGLAN                             /00041901/ [Concomitant]
     Dosage: 10 MG, TID
     Route: 048
     Dates: start: 20070731
  16. NITROGLYCERIN [Concomitant]
     Dosage: 1 TABLET, PRN
     Route: 048
     Dates: start: 20010101
  17. GABAPENTIN [Concomitant]
     Dosage: 2 (300 MG, TID)
     Route: 048
     Dates: start: 20060101
  18. OXYCODONE HCL [Concomitant]
     Indication: BREAKTHROUGH PAIN
     Dosage: 10 MG, ONE TO TWO DAILY
     Route: 048
     Dates: start: 20070820

REACTIONS (8)
  - ATELECTASIS [None]
  - BLOOD GLUCOSE INCREASED [None]
  - CHEST PAIN [None]
  - DYSPNOEA [None]
  - HAEMATOCRIT DECREASED [None]
  - HAEMOGLOBIN DECREASED [None]
  - MYOCARDIAL INFARCTION [None]
  - PNEUMONIA [None]
